FAERS Safety Report 4455756-9 (Version None)
Quarter: 2004Q3

REPORT INFORMATION
  Report Type: 
  Country: None (occurrence: None)
  Receive Date: 20040921
  Receipt Date: 20040907
  Transmission Date: 20050211
  Serious: No
  Sender: FDA-Public Use
  Company Number: 2004GB01506

PATIENT
  Age: 61 Year
  Sex: Female

DRUGS (5)
  1. CRESTOR [Suspect]
     Indication: BLOOD CHOLESTEROL INCREASED
     Dosage: 10 MG PO
     Route: 048
     Dates: start: 20030701, end: 20040617
  2. GLARGINE [Concomitant]
  3. METFORMIN HCL [Concomitant]
  4. CANDESARTAN [Concomitant]
  5. DETEMIR [Concomitant]

REACTIONS (6)
  - ABASIA [None]
  - ASTHENIA [None]
  - LETHARGY [None]
  - MUSCULOSKELETAL DISCOMFORT [None]
  - MYALGIA [None]
  - WEIGHT INCREASED [None]
